FAERS Safety Report 15694958 (Version 1)
Quarter: 2018Q4

REPORT INFORMATION
  Report Type: Spontaneous
  Country: US (occurrence: US)
  Receive Date: 20181206
  Receipt Date: 20181206
  Transmission Date: 20190205
  Serious: No
  Sender: FDA-Public Use
  Company Number: US-BAYER-2018-225645

PATIENT
  Age: 11 Year
  Sex: Male

DRUGS (1)
  1. MIRALAX [Suspect]
     Active Substance: POLYETHYLENE GLYCOL 3350
     Route: 048

REACTIONS (6)
  - Tremor [Unknown]
  - Chills [Unknown]
  - Product administered to patient of inappropriate age [Unknown]
  - Therapeutic response unexpected [Unknown]
  - Product use issue [Unknown]
  - Body temperature decreased [Unknown]
